FAERS Safety Report 24862662 (Version 2)
Quarter: 2025Q3

REPORT INFORMATION
  Report Type: Spontaneous
  Country: US (occurrence: US)
  Receive Date: 20250120
  Receipt Date: 20250922
  Transmission Date: 20251021
  Serious: Yes (Other)
  Sender: COOPERSURGICAL
  Company Number: US-COOPERSURGICAL, INC.-2025CPS000082

PATIENT
  Age: 33 Year
  Sex: Female
  Weight: 81.633 kg

DRUGS (1)
  1. PARAGARD T 380A [Suspect]
     Active Substance: COPPER
     Indication: Contraception
     Route: 015
     Dates: start: 20160406

REACTIONS (26)
  - Surgery [Recovered/Resolved]
  - Salpingectomy [Recovered/Resolved]
  - Reproductive complication associated with device [Not Recovered/Not Resolved]
  - Infertility female [Not Recovered/Not Resolved]
  - Deep vein thrombosis [Unknown]
  - Pulmonary embolism [Unknown]
  - Pneumonia [Unknown]
  - Device breakage [Recovered/Resolved]
  - Foreign body in urogenital tract [Recovered/Resolved]
  - Complication of device removal [Recovered/Resolved]
  - Embedded device [Recovered/Resolved]
  - Procedural haemorrhage [Recovered/Resolved]
  - Fear [Unknown]
  - Pollakiuria [Unknown]
  - Urinary tract infection [Unknown]
  - Dysuria [Unknown]
  - Depression [Unknown]
  - Device issue [Recovered/Resolved]
  - Procedural pain [Recovered/Resolved]
  - Procedural anxiety [Recovered/Resolved]
  - Procedural nausea [Recovered/Resolved]
  - Emotional distress [Not Recovered/Not Resolved]
  - Wheezing [Unknown]
  - Irregular breathing [Recovered/Resolved]
  - Device dislocation [Recovered/Resolved]
  - Pain [Not Recovered/Not Resolved]

NARRATIVE: CASE EVENT DATE: 20161122
